FAERS Safety Report 11087966 (Version 1)
Quarter: 2015Q2

REPORT INFORMATION
  Report Type: Spontaneous
  Country: US (occurrence: US)
  Receive Date: 20150504
  Receipt Date: 20150504
  Transmission Date: 20150821
  Serious: Yes (Other)
  Sender: FDA-Public Use
  Company Number: US-PFIZER INC-2015139112

PATIENT
  Sex: Male

DRUGS (1)
  1. CHAPSTICK LIP BALM [Suspect]
     Active Substance: ISOPROPYL MYRISTATE
     Dosage: UNK
     Dates: start: 2012

REACTIONS (1)
  - Coeliac disease [Unknown]

NARRATIVE: CASE EVENT DATE: 2013
